FAERS Safety Report 24039195 (Version 2)
Quarter: 2024Q3

REPORT INFORMATION
  Report Type: Report from Study
  Country: CA (occurrence: CA)
  Receive Date: 20240702
  Receipt Date: 20240724
  Transmission Date: 20241016
  Serious: Yes (Hospitalization, Other)
  Sender: ABBVIE
  Company Number: CA-ABBVIE-5820203

PATIENT
  Age: 36 Year
  Sex: Female

DRUGS (1)
  1. RINVOQ [Suspect]
     Active Substance: UPADACITINIB
     Indication: Crohn^s disease
     Dosage: DAILY FOR 12 WEEKS THEN 30MG DAILY
     Route: 048
     Dates: start: 202405

REACTIONS (11)
  - Obstruction [Recovered/Resolved]
  - Crohn^s disease [Unknown]
  - Flatulence [Unknown]
  - Frustration tolerance decreased [Unknown]
  - Small intestinal obstruction [Unknown]
  - Gastrointestinal disorder [Unknown]
  - Vomiting [Unknown]
  - Nausea [Unknown]
  - Intestinal resection [Unknown]
  - Abdominal pain lower [Unknown]
  - Diarrhoea [Unknown]

NARRATIVE: CASE EVENT DATE: 20240101
